FAERS Safety Report 18347153 (Version 2)
Quarter: 2020Q4

REPORT INFORMATION
  Report Type: Spontaneous
  Country: FR (occurrence: FR)
  Receive Date: 20201006
  Receipt Date: 20201029
  Transmission Date: 20210114
  Serious: Yes (Life-Threatening, Hospitalization, Other)
  Sender: FDA-Public Use
  Company Number: FR-AUROBINDO-AUR-APL-2020-050539

PATIENT
  Age: 12 Year
  Sex: Female

DRUGS (2)
  1. AMIODARONE TABLETS [Suspect]
     Active Substance: AMIODARONE
     Indication: VENTRICULAR FIBRILLATION
     Dosage: UNK
     Route: 065
     Dates: start: 2014
  2. AMIODARONE TABLETS [Suspect]
     Active Substance: AMIODARONE
     Indication: ARTERIAL DISORDER

REACTIONS (2)
  - Ventricular fibrillation [Recovered/Resolved]
  - Drug ineffective [Recovered/Resolved]

NARRATIVE: CASE EVENT DATE: 201907
